FAERS Safety Report 4451921-5 (Version None)
Quarter: 2004Q3

REPORT INFORMATION
  Report Type: 
  Country: None (occurrence: None)
  Receive Date: 20040917
  Receipt Date: 20040908
  Transmission Date: 20050211
  Serious: Yes (Hospitalization)
  Sender: FDA-Public Use
  Company Number: CA-JNJFOC-20040202914

PATIENT
  Sex: Male
  Weight: 60.9 kg

DRUGS (7)
  1. REMICADE [Suspect]
     Route: 042
  2. REMICADE [Suspect]
     Route: 042
  3. REMICADE [Suspect]
     Route: 042
  4. REMICADE [Suspect]
     Indication: RHEUMATOID ARTHRITIS
     Route: 042
  5. METHOTREXATE [Concomitant]
     Indication: RHEUMATOID ARTHRITIS
     Route: 049
  6. PREDNISONE [Concomitant]
     Indication: RHEUMATOID ARTHRITIS
     Route: 049
  7. PLAQUENIL [Concomitant]
     Indication: RHEUMATOID ARTHRITIS
     Route: 049

REACTIONS (7)
  - BILE DUCT OBSTRUCTION [None]
  - FATIGUE [None]
  - HEPATIC MASS [None]
  - HEPATITIS [None]
  - LABORATORY TEST ABNORMAL [None]
  - PANCREATIC CARCINOMA [None]
  - PRURITUS [None]
